FAERS Safety Report 19754806 (Version 1)
Quarter: 2021Q3

REPORT INFORMATION
  Report Type: Spontaneous
  Country: DE (occurrence: DE)
  Receive Date: 20210827
  Receipt Date: 20210827
  Transmission Date: 20211014
  Serious: Yes (Death, Life-Threatening, Hospitalization)
  Sender: FDA-Public Use
  Company Number: NVSC2021DE187810

PATIENT
  Sex: Female
  Weight: 74 kg

DRUGS (17)
  1. SALBUTAMOL [Concomitant]
     Active Substance: ALBUTEROL
     Indication: BRONCHOSPASM
     Dosage: UNK
     Route: 065
  2. MOVICOL [Concomitant]
     Active Substance: POLYETHYLENE GLYCOL 3350\POTASSIUM CHLORIDE\SODIUM BICARBONATE\SODIUM CHLORIDE
     Indication: CONSTIPATION
     Dosage: UNK
     Route: 065
  3. SACCHAROMYCES CEREVISIAE. [Concomitant]
     Active Substance: SACCHAROMYCES CEREVISIAE
     Indication: PRODUCT USED FOR UNKNOWN INDICATION
     Dosage: UNK
     Route: 065
  4. TAVOR (LORAZEPAM) [Concomitant]
     Active Substance: LORAZEPAM
     Indication: PSYCHOTHERAPY
     Dosage: UNK
     Route: 065
  5. NOVALGIN [Concomitant]
     Indication: ANALGESIC THERAPY
     Dosage: UNK
     Route: 065
  6. WASSER F INJ [Concomitant]
     Indication: PRODUCT USED FOR UNKNOWN INDICATION
     Dosage: UNK
     Route: 065
  7. MORPHINE SULFATE. [Concomitant]
     Active Substance: MORPHINE SULFATE
     Indication: PRODUCT USED FOR UNKNOWN INDICATION
     Dosage: UNK
     Route: 065
  8. BIMEKIZUMAB [Suspect]
     Active Substance: BIMEKIZUMAB
     Indication: PSORIASIS
     Dosage: UNK
     Route: 058
     Dates: start: 20190327, end: 20190911
  9. IMODIUM AKUT [Concomitant]
     Active Substance: LOPERAMIDE
     Indication: DIARRHOEA
     Dosage: UNK
     Route: 065
  10. MESALAZINE [Concomitant]
     Active Substance: MESALAMINE
     Indication: PRODUCT USED FOR UNKNOWN INDICATION
     Dosage: UNK
     Route: 065
  11. METOCLOPRAMIDE. [Concomitant]
     Active Substance: METOCLOPRAMIDE
     Indication: PRODUCT USED FOR UNKNOWN INDICATION
     Dosage: UNK
     Route: 065
  12. NUTRISON SOYA MULTI FIBER [Concomitant]
     Indication: PRODUCT USED FOR UNKNOWN INDICATION
     Dosage: UNK
     Route: 065
  13. NACL [Concomitant]
     Active Substance: SODIUM CHLORIDE
     Indication: BRONCHOSPASM
     Dosage: UNK
     Route: 065
  14. DALTEPARIN SODIUM [Concomitant]
     Active Substance: DALTEPARIN SODIUM
     Indication: THROMBOSIS
     Dosage: UNK
     Route: 065
  15. SECUKINUMAB. [Suspect]
     Active Substance: SECUKINUMAB
     Indication: PSORIASIS
     Dosage: UNK
     Route: 058
     Dates: start: 20190327, end: 20190911
  16. PREGABALIN. [Concomitant]
     Active Substance: PREGABALIN
     Indication: PRODUCT USED FOR UNKNOWN INDICATION
     Dosage: UNK
     Route: 065
     Dates: start: 20160901
  17. OMEPRAZOLE. [Concomitant]
     Active Substance: OMEPRAZOLE
     Indication: PROPHYLAXIS
     Dosage: UNK
     Route: 065

REACTIONS (15)
  - Malaise [Unknown]
  - Cardiac arrest [Fatal]
  - Infection [Unknown]
  - Apnoea [Unknown]
  - Vomiting [Unknown]
  - Hypoxia [Unknown]
  - Aspiration [Unknown]
  - Hypertonia [Unknown]
  - Muscle contractions involuntary [Unknown]
  - Seizure [Unknown]
  - Apallic syndrome [Unknown]
  - Epilepsy [Unknown]
  - Asphyxia [Unknown]
  - Brain injury [Unknown]
  - Tachycardia [Unknown]

NARRATIVE: CASE EVENT DATE: 20190904
